FAERS Safety Report 7621980-7 (Version None)
Quarter: 2011Q3

REPORT INFORMATION
  Report Type: 
  Country: None (occurrence: None)
  Receive Date: 20110720
  Receipt Date: 20110531
  Transmission Date: 20111222
  Serious: Yes (Other)
  Sender: FDA-Public Use
  Company Number: US-BAYER-2011-047376

PATIENT
  Age: 66 Year
  Sex: Female
  Weight: 63.492 kg

DRUGS (1)
  1. ALEVE (CAPLET) [Suspect]
     Indication: ANALGESIC THERAPY
     Dosage: 2 DF, ONCE
     Route: 048
     Dates: start: 20110528, end: 20110528

REACTIONS (4)
  - HYPERSENSITIVITY [None]
  - FOAMING AT MOUTH [None]
  - DYSPNOEA [None]
  - ANAPHYLACTIC SHOCK [None]
